FAERS Safety Report 8970088 (Version 1)
Quarter: 2012Q4

REPORT INFORMATION
  Report Type: 
  Country: US (occurrence: US)
  Receive Date: 20121217
  Receipt Date: 20121217
  Transmission Date: 20130627
  Serious: No
  Sender: FDA-Public Use
  Company Number: US-PFIZER INC-2012318549

PATIENT
  Age: 43 Year
  Sex: Female
  Weight: 95.24 kg

DRUGS (3)
  1. LYRICA [Suspect]
     Indication: ARTHRITIS
     Dosage: 25 mg, 1x/day
     Route: 048
     Dates: start: 2012
  2. LYRICA [Suspect]
     Indication: TENDON DISORDER
     Dosage: 150 mg (two capsules of 75mg), 1x/day
     Route: 048
  3. LYRICA [Suspect]
     Dosage: UNK
     Route: 048
     Dates: end: 201209

REACTIONS (2)
  - Off label use [Unknown]
  - Therapeutic response unexpected [Unknown]
